FAERS Safety Report 9825720 (Version 1)
Quarter: 2013Q4

REPORT INFORMATION
  Report Type: Spontaneous
  Country: US (occurrence: None)
  Receive Date: 20131223
  Receipt Date: 20131223
  Transmission Date: 20140711
  Serious: Yes (Other)
  Sender: FDA-Public Use
  Company Number: 220195LEO

PATIENT
  Age: 60 Year
  Sex: Male

DRUGS (3)
  1. PICATO [Suspect]
     Indication: ACTINIC KERATOSIS
     Dosage: (DAILY), TOPICAL
     Route: 061
     Dates: start: 20130113, end: 20130115
  2. LIPITOR (ATORVASTATIN CALCIUM) [Concomitant]
  3. LISINOPRIL (LISINOPRIL) [Concomitant]

REACTIONS (3)
  - Application site erythema [None]
  - Application site exfoliation [None]
  - Application site pain [None]
